FAERS Safety Report 20719030 (Version 2)
Quarter: 2022Q2

REPORT INFORMATION
  Report Type: Spontaneous
  Country: TW (occurrence: TW)
  Receive Date: 20220418
  Receipt Date: 20220428
  Transmission Date: 20220721
  Serious: Yes (Life-Threatening, Hospitalization, Other)
  Sender: FDA-Public Use
  Company Number: TW-MACLEODS PHARMACEUTICALS US LTD-MAC2022035247

PATIENT

DRUGS (18)
  1. CLOPIDOGREL [Suspect]
     Active Substance: CLOPIDOGREL BISULFATE
     Indication: Product used for unknown indication
     Dosage: 75 MILLIGRAM, QD( ONE DOSAGEFORM) (PLAVIX), STOPPED ON 28-FEB-2020
     Route: 065
  2. BISOPROLOL [Suspect]
     Active Substance: BISOPROLOL
     Indication: Product used for unknown indication
     Dosage: 1.25 MILLIGRAM, QD, STOPPED IN 2020
     Route: 065
  3. BISOPROLOL [Suspect]
     Active Substance: BISOPROLOL
     Dosage: 0.5 DOSAGE FORM, QD
     Route: 065
     Dates: start: 20200301, end: 20220322
  4. ACTOS [Suspect]
     Active Substance: PIOGLITAZONE HYDROCHLORIDE
     Indication: Product used for unknown indication
     Dosage: 0.5 DOSAGE FORM, QD, STOPPED IN 28-FEB-2020
     Route: 065
  5. DIOVAN [Suspect]
     Active Substance: VALSARTAN
     Indication: Product used for unknown indication
     Dosage: 80 MILLIGRAM, QD (1 DOSAGEFORM QD ), STOPPED IN 28-FEB-2020
     Route: 065
  6. FUROSEMIDE [Suspect]
     Active Substance: FUROSEMIDE
     Indication: Product used for unknown indication
     Dosage: 40 MILLIGRAM, QD (1 DF ONCE IN DAY), STOPPED IN 28-FEB-2020
     Route: 065
  7. ISOSORBIDE MONONITRATE [Suspect]
     Active Substance: ISOSORBIDE MONONITRATE
     Indication: Product used for unknown indication
     Dosage: 20 MILLIGRAM, BID (EVERY 12 HOUR) (ONE DOSAGEFORM), STOPPED IN 28-FEB-2020
     Route: 065
  8. SPIRONOLACTONE [Suspect]
     Active Substance: SPIRONOLACTONE
     Indication: Product used for unknown indication
     Dosage: 1 DOSAGE FORM, QD, STOPPED IN 22-MAR-2020
     Route: 065
     Dates: start: 20200301
  9. SPIRONOLACTONE [Suspect]
     Active Substance: SPIRONOLACTONE
     Dosage: 25 MILLIGRAM, BID (EVERY 12 HOUR) 1 DOSAGE FORM), STOPPED IN 28-FEB-2020
     Route: 065
  10. CANAGLIFLOZIN [Suspect]
     Active Substance: CANAGLIFLOZIN
     Indication: Product used for unknown indication
     Dosage: 100 NANOGRAM, QD (1 DF ONCE IN DAY), STOPPED IN 28-FEB-2020
     Route: 065
  11. HYDRALAZINE [Suspect]
     Active Substance: HYDRALAZINE HYDROCHLORIDE
     Indication: Product used for unknown indication
     Dosage: 10 MILLIGRAM, TID (EVERY 8 HOUR) (ONE DOSAGEFORM) AFTER MEALS, STOP DATE: 28-FEB-2020
     Route: 065
  12. ASPIRIN [Suspect]
     Active Substance: ASPIRIN
     Indication: Product used for unknown indication
     Dosage: 100 MILLIGRAM, QD(1 DOSAGEFORM QD), STOP DATE: 28-FEB-2020
     Route: 065
  13. NORVASC [Concomitant]
     Active Substance: AMLODIPINE BESYLATE
     Indication: Product used for unknown indication
     Dosage: 5 MILLIGRAM, BID (EVERY 12 HOUR) (ONCE A DAY) (1 DOSAGE FORM)
     Route: 065
  14. NORVASC [Concomitant]
     Active Substance: AMLODIPINE BESYLATE
     Dosage: 5 MILLIGRAM, PRN SOS
     Route: 065
     Dates: start: 20200423
  15. NORVASC [Concomitant]
     Active Substance: AMLODIPINE BESYLATE
     Dosage: 5 MILLIGRAM SOS
     Route: 065
     Dates: start: 20200330
  16. AMARYL [Concomitant]
     Active Substance: GLIMEPIRIDE
     Indication: Product used for unknown indication
     Dosage: 2 MILLIGRAM, TID,1 DF BEFORE MEAL  (DOSE REDUCED), STOP DATE: 28-FEB-2020
     Route: 065
  17. AMARYL [Concomitant]
     Active Substance: GLIMEPIRIDE
     Dosage: 2 DOSAGE FORM, QD (DOSE REDUCED), STOP DATE: 01-MAR-2020
     Route: 065
  18. AMARYL [Concomitant]
     Active Substance: GLIMEPIRIDE
     Dosage: 2 MILLIGRAM (2TAB QDAC), START DATE: 23-APR-2020
     Route: 065

REACTIONS (5)
  - Cardiac failure congestive [Recovering/Resolving]
  - Renal impairment [Recovering/Resolving]
  - Pneumothorax [Recovering/Resolving]
  - Hydronephrosis [Recovering/Resolving]
  - Discomfort [Recovering/Resolving]

NARRATIVE: CASE EVENT DATE: 20200201
